FAERS Safety Report 8233909-1 (Version None)
Quarter: 2012Q1

REPORT INFORMATION
  Report Type: 
  Country: None (occurrence: None)
  Receive Date: 20120307
  Receipt Date: 20110524
  Transmission Date: 20120608
  Serious: Yes (Other)
  Sender: FDA-Public Use
  Company Number: PHHY2011US44746

PATIENT
  Age: 4 Year
  Sex: Male

DRUGS (5)
  1. POLY-VI-SOL (VITAMINS NOS) [Concomitant]
  2. KEPPRA [Concomitant]
  3. DEPAKOTE [Concomitant]
  4. NEXIUM [Concomitant]
  5. AFINITOR [Suspect]
     Indication: TUBEROUS SCLEROSIS
     Dosage: 2.5 MG, DAILY, UNKNOWN
     Dates: start: 20110509, end: 20110515

REACTIONS (3)
  - RASH [None]
  - HYPERSENSITIVITY [None]
  - OEDEMA PERIPHERAL [None]
